FAERS Safety Report 6871206-7 (Version None)
Quarter: 2010Q3

REPORT INFORMATION
  Report Type: 
  Country: None (occurrence: None)
  Receive Date: 20100723
  Receipt Date: 20100715
  Transmission Date: 20110219
  Serious: Yes (Hospitalization)
  Sender: FDA-Public Use
  Company Number: FR-ROCHE-715963

PATIENT

DRUGS (2)
  1. TAMIFLU [Suspect]
     Dates: start: 20091119, end: 20091129
  2. PANENZA [Suspect]
     Indication: PRODUCT USED FOR UNKNOWN INDICATION
     Dosage: FREQUENCY: ONE INTAKE
     Dates: start: 20091124

REACTIONS (1)
  - PREMATURE LABOUR [None]
